FAERS Safety Report 4441779-2 (Version None)
Quarter: 2004Q3

REPORT INFORMATION
  Report Type: 
  Country: None (occurrence: None)
  Receive Date: 20040907
  Receipt Date: 20040825
  Transmission Date: 20050211
  Serious: Yes (Disabling, Other)
  Sender: FDA-Public Use
  Company Number: US-MERCK-0408USA02000

PATIENT
  Age: 56 Year
  Sex: Male
  Weight: 80 kg

DRUGS (13)
  1. NORVASC [Concomitant]
     Route: 065
  2. ECOTRIN [Concomitant]
     Route: 065
  3. CALCIUM (UNSPECIFIED) [Concomitant]
     Route: 065
  4. HYDRODIURIL [Concomitant]
     Route: 048
  5. MAGNESIUM (UNSPECIFIED) [Concomitant]
     Route: 065
  6. LOPRESSOR [Concomitant]
     Route: 065
  7. ALTACE [Concomitant]
     Route: 065
  8. ZOCOR [Suspect]
     Indication: CORONARY ARTERY DISEASE
     Route: 048
     Dates: start: 20030701, end: 20040424
  9. ZOCOR [Suspect]
     Route: 048
     Dates: start: 20020201, end: 20030701
  10. ZOCOR [Suspect]
     Route: 048
     Dates: start: 20040101
  11. HYTRIN [Concomitant]
     Route: 065
  12. VITAMIN D (UNSPECIFIED) [Concomitant]
     Route: 065
  13. VITAMIN E [Concomitant]
     Route: 065

REACTIONS (4)
  - ALDOLASE INCREASED [None]
  - BACK PAIN [None]
  - BLOOD CREATINE PHOSPHOKINASE INCREASED [None]
  - MYALGIA [None]
